FAERS Safety Report 11362990 (Version 4)
Quarter: 2015Q4

REPORT INFORMATION
  Report Type: Report from Study
  Country: US (occurrence: US)
  Receive Date: 20150810
  Receipt Date: 20151029
  Transmission Date: 20160304
  Serious: Yes (Hospitalization, Other)
  Sender: FDA-Public Use
  Company Number: US-ACTELION-A-US2015-121067

PATIENT
  Age: 52 Year
  Sex: Female

DRUGS (5)
  1. OXYGEN. [Concomitant]
     Active Substance: OXYGEN
     Dosage: 5 L @ REST, 8 L @ ACTIVITY
  2. TRACLEER [Suspect]
     Active Substance: BOSENTAN
     Indication: PULMONARY ARTERIAL HYPERTENSION
     Dosage: UNK
     Route: 048
  3. VELETRI [Suspect]
     Active Substance: EPOPROSTENOL
     Indication: PULMONARY ARTERIAL HYPERTENSION
     Dosage: 14.1 NG/KG, PER MIN
     Route: 042
  4. VELETRI [Suspect]
     Active Substance: EPOPROSTENOL
     Dosage: 32.7 NG/KG, PER MIN
     Route: 042
  5. VELETRI [Suspect]
     Active Substance: EPOPROSTENOL
     Dosage: UNK
     Route: 042

REACTIONS (9)
  - Condition aggravated [Unknown]
  - Fluid overload [Unknown]
  - Oxygen saturation decreased [Unknown]
  - Pulmonary oedema [Unknown]
  - Malaise [Unknown]
  - Dyspnoea [Unknown]
  - Blood magnesium decreased [Unknown]
  - Dyspnoea exertional [Unknown]
  - Feeling abnormal [Unknown]
